FAERS Safety Report 8072739-0 (Version None)
Quarter: 2012Q1

REPORT INFORMATION
  Report Type: 
  Country: None (occurrence: None)
  Receive Date: 20120126
  Receipt Date: 20120119
  Transmission Date: 20120608
  Serious: Yes (Other)
  Sender: FDA-Public Use
  Company Number: US-JNJFOC-20120108620

PATIENT
  Age: 60 Year
  Sex: Female
  Weight: 81.65 kg

DRUGS (2)
  1. LISTERINE WHITENING PLUS RESTORING FLUORIDE RINSE CLEAN MINT [Suspect]
     Indication: DENTAL DISORDER PROPHYLAXIS
     Dosage: ^A LITTLE BIT^
     Route: 048
     Dates: start: 20111201, end: 20120101
  2. CIPROFLOXACIN [Concomitant]
     Indication: SEASONAL ALLERGY
     Route: 065

REACTIONS (1)
  - TONGUE ULCERATION [None]
